FAERS Safety Report 5961890-4 (Version None)
Quarter: 2008Q4

REPORT INFORMATION
  Report Type: 
  Country: None (occurrence: None)
  Receive Date: 20081121
  Receipt Date: 20081105
  Transmission Date: 20090506
  Serious: Yes (Other)
  Sender: FDA-Public Use
  Company Number: JP-GENENTECH-271830

PATIENT
  Age: 31 Year
  Sex: Male

DRUGS (1)
  1. AVASTIN [Suspect]
     Indication: DIABETIC RETINOPATHY
     Dosage: 1 MG, UNK
     Route: 031

REACTIONS (1)
  - VISUAL ACUITY REDUCED [None]
